FAERS Safety Report 10144562 (Version 1)
Quarter: 2014Q2

REPORT INFORMATION
  Report Type: Spontaneous
  Country: US (occurrence: US)
  Receive Date: 20140430
  Receipt Date: 20140430
  Transmission Date: 20141212
  Serious: No
  Sender: FDA-Public Use
  Company Number: US-SANOFI-AVENTIS-2013SA042589

PATIENT
  Age: 66 Year
  Sex: Female
  Weight: 113 kg

DRUGS (7)
  1. LOVENOX [Suspect]
     Indication: PRODUCT USED FOR UNKNOWN INDICATION
     Dates: start: 20130411, end: 20130416
  2. WARFARIN [Concomitant]
     Indication: THROMBOSIS
     Route: 065
     Dates: start: 20130408
  3. VITAMIN D3 [Concomitant]
  4. MAGNESIUM CITRATE [Concomitant]
     Indication: BONE DISORDER
  5. VITAMIN B12 [Concomitant]
  6. LORATADINE [Concomitant]
     Indication: HYPERSENSITIVITY
  7. CLOTRIMAZOLE [Concomitant]

REACTIONS (7)
  - Rash [Unknown]
  - Injection site pruritus [Not Recovered/Not Resolved]
  - Injection site erythema [Not Recovered/Not Resolved]
  - Injection site warmth [Recovering/Resolving]
  - Injection site swelling [Recovering/Resolving]
  - Injection site rash [Not Recovered/Not Resolved]
  - Rash pruritic [Not Recovered/Not Resolved]
